FAERS Safety Report 9000232 (Version 1)
Quarter: 2013Q1

REPORT INFORMATION
  Report Type: Spontaneous
  Country: US (occurrence: US)
  Receive Date: 20130106
  Receipt Date: 20130106
  Transmission Date: 20140127
  Serious: No
  Sender: FDA-Public Use
  Company Number: US-ASTRAZENECA-2012SE96156

PATIENT
  Age: 70 Year
  Sex: Female

DRUGS (2)
  1. TENORMIN [Suspect]
     Dosage: GENERIC
     Route: 048
  2. ADVIL [Concomitant]

REACTIONS (1)
  - Contusion [Unknown]
